FAERS Safety Report 14482741 (Version 2)
Quarter: 2018Q1

REPORT INFORMATION
  Report Type: Spontaneous
  Country: IT (occurrence: IT)
  Receive Date: 20180203
  Receipt Date: 20180305
  Transmission Date: 20180509
  Serious: Yes (Other)
  Sender: FDA-Public Use
  Company Number: IT-TEVA-2018-IT-850840

PATIENT
  Age: 77 Year
  Sex: Female

DRUGS (4)
  1. LASIX [Suspect]
     Active Substance: FUROSEMIDE
     Route: 048
     Dates: start: 20170101, end: 20170416
  2. TRITTICO [Concomitant]
     Active Substance: TRAZODONE HYDROCHLORIDE
  3. PARIET [Concomitant]
     Active Substance: RABEPRAZOLE SODIUM
  4. PAROXETINE. [Suspect]
     Active Substance: PAROXETINE
     Indication: DEPRESSION
     Dosage: 10 MG, QD
     Route: 048
     Dates: start: 20170101, end: 20170416

REACTIONS (4)
  - Head injury [Recovering/Resolving]
  - Fall [Recovering/Resolving]
  - Hyponatraemia [Recovering/Resolving]
  - Hypokalaemia [Recovering/Resolving]

NARRATIVE: CASE EVENT DATE: 20170416
